FAERS Safety Report 9963328 (Version 5)
Quarter: 2014Q2

REPORT INFORMATION
  Report Type: Spontaneous
  Country: JP (occurrence: JP)
  Receive Date: 20140305
  Receipt Date: 20140515
  Transmission Date: 20141212
  Serious: Yes (Death, Life-Threatening, Hospitalization)
  Sender: FDA-Public Use
  Company Number: JP-BRISTOL-MYERS SQUIBB COMPANY-20308771

PATIENT
  Age: 91 Year
  Sex: Male

DRUGS (11)
  1. ELIQUIS [Suspect]
     Indication: THROMBOSIS PROPHYLAXIS
     Dosage: TABLETS
     Route: 048
     Dates: start: 20140213, end: 20140220
  2. CIBENOL [Suspect]
     Indication: ATRIAL FIBRILLATION
     Dosage: INTRUPETD ON 20FEB2014?RESTARTED ON 25FEB2014
     Route: 048
     Dates: start: 20140205, end: 20140228
  3. MAINTATE [Suspect]
     Dates: start: 20140213
  4. ADALAT [Concomitant]
     Route: 048
  5. LANSOPRAZOLE [Concomitant]
  6. LOSARTAN [Concomitant]
     Dosage: TAB
     Route: 048
  7. AMLODIPINE [Concomitant]
     Dosage: TAB
     Route: 048
  8. FUROSEMIDE [Concomitant]
  9. NICORANDIL [Concomitant]
  10. ITOROL [Concomitant]
     Route: 048
  11. MAGLAX [Concomitant]
     Route: 048

REACTIONS (2)
  - Interstitial lung disease [Fatal]
  - Cardiac failure [Unknown]
